FAERS Safety Report 24446755 (Version 1)
Quarter: 2024Q4

REPORT INFORMATION
  Report Type: Spontaneous
  Country: GB (occurrence: GB)
  Receive Date: 20241016
  Receipt Date: 20241016
  Transmission Date: 20250115
  Serious: Yes (Other)
  Sender: DR REDDYS
  Company Number: GB-GERMAN-LIT/GBR/24/0015296

PATIENT
  Age: 31 Year
  Sex: Male

DRUGS (3)
  1. IMATINIB [Suspect]
     Active Substance: IMATINIB
     Indication: Chronic myeloid leukaemia
  2. HYDROXYUREA [Concomitant]
     Active Substance: HYDROXYUREA
     Indication: Chronic myeloid leukaemia
  3. INTERFERON [Concomitant]
     Active Substance: INTERFERON
     Indication: Chronic myeloid leukaemia

REACTIONS (1)
  - Drug intolerance [Unknown]
